FAERS Safety Report 4718227-8 (Version None)
Quarter: 2005Q3

REPORT INFORMATION
  Report Type: 
  Country: None (occurrence: None)
  Receive Date: 20050718
  Receipt Date: 20050121
  Transmission Date: 20060218
  Serious: No
  Sender: FDA-Public Use
  Company Number: 2005000173

PATIENT
  Sex: Female

DRUGS (4)
  1. TARCEVA [Suspect]
     Indication: NON-SMALL CELL LUNG CANCER
     Dosage: 150 MG (QD), ORAL
     Route: 048
     Dates: start: 20050106
  2. RALOXIFENE HCL [Concomitant]
  3. LANSOPRAZOLE [Concomitant]
  4. SERETIDE (SERETIDE) [Concomitant]

REACTIONS (4)
  - COLD SWEAT [None]
  - DIARRHOEA [None]
  - NAUSEA [None]
  - RASH [None]
